FAERS Safety Report 12191432 (Version 1)
Quarter: 2016Q1

REPORT INFORMATION
  Report Type: Spontaneous
  Country: US (occurrence: None)
  Receive Date: 20160317
  Receipt Date: 20160317
  Transmission Date: 20160526
  Serious: No
  Sender: FDA-Public Use
  Company Number: None

PATIENT
  Age: 84 Year
  Sex: Male

DRUGS (10)
  1. VITAMIN D [Concomitant]
     Active Substance: CHOLECALCIFEROL
  2. FLUTAMIDE. [Concomitant]
     Active Substance: FLUTAMIDE
  3. FUROSEMIDE. [Concomitant]
     Active Substance: FUROSEMIDE
  4. FISH OIL [Concomitant]
     Active Substance: FISH OIL
  5. CYTRA-2 [Concomitant]
     Active Substance: CITRIC ACID MONOHYDRATE\TRISODIUM CITRATE DIHYDRATE
  6. PREDNISONE. [Concomitant]
     Active Substance: PREDNISONE
  7. CENTRUM [Concomitant]
     Active Substance: VITAMINS
  8. ALLOPURINOL. [Concomitant]
     Active Substance: ALLOPURINOL
  9. ZYTIGA [Suspect]
     Active Substance: ABIRATERONE ACETATE
     Indication: PROSTATE CANCER
     Route: 048
     Dates: start: 20160118
  10. LUPRON [Concomitant]
     Active Substance: LEUPROLIDE ACETATE

REACTIONS (1)
  - Rash [None]

NARRATIVE: CASE EVENT DATE: 201603
